FAERS Safety Report 5642489-6 (Version None)
Quarter: 2008Q1

REPORT INFORMATION
  Report Type: 
  Country: None (occurrence: None)
  Receive Date: 20080227
  Receipt Date: 20080227
  Transmission Date: 20080703
  Serious: Yes (Disabling, Other)
  Sender: FDA-Public Use
  Company Number: None

PATIENT
  Age: 70 Year
  Sex: Female

DRUGS (3)
  1. FOSAMAX [Suspect]
     Indication: OSTEOPENIA
     Dosage: 70MG/WKLY
     Dates: start: 20011101, end: 20061114
  2. SYNTHROID [Concomitant]
  3. ACTIVELLA [Concomitant]

REACTIONS (1)
  - OSTEONECROSIS [None]
